FAERS Safety Report 13776624 (Version 1)
Quarter: 2017Q3

REPORT INFORMATION
  Report Type: Spontaneous
  Country: GB (occurrence: GB)
  Receive Date: 20170721
  Receipt Date: 20170721
  Transmission Date: 20171127
  Serious: Yes (Life-Threatening)
  Sender: FDA-Public Use
  Company Number: GB-PFIZER INC-2017312700

PATIENT
  Age: 54 Year
  Sex: Female
  Weight: 71.5 kg

DRUGS (7)
  1. HERCEPTIN [Suspect]
     Active Substance: TRASTUZUMAB
     Indication: BREAST CANCER METASTATIC
     Dosage: 420 MG, ONCE IN 21 DAYS (4TH CYCLE)
     Route: 042
     Dates: start: 20130822
  2. HERCEPTIN [Suspect]
     Active Substance: TRASTUZUMAB
     Dosage: 588 MG TO 420 MG
  3. PERJETA [Suspect]
     Active Substance: PERTUZUMAB
     Indication: BREAST CANCER METASTATIC
     Dosage: 420 MG, ONCE IN 21 DAYS (4TH CYCLE)
     Route: 042
     Dates: start: 20130822
  4. DOCETAXEL. [Suspect]
     Active Substance: DOCETAXEL
     Indication: BREAST CANCER METASTATIC
     Dosage: 140 MG, ONCE IN 21 DAYS (4TH CYCLE)
     Route: 042
     Dates: start: 20130822, end: 20131205
  5. DEXAMETHASONE. [Concomitant]
     Active Substance: DEXAMETHASONE
     Indication: PROPHYLAXIS OF NAUSEA AND VOMITING
     Dosage: 8 MG, 2X/DAY
     Route: 065
     Dates: start: 20130822, end: 20131206
  6. METOCLOPRAMIDE. [Concomitant]
     Active Substance: METOCLOPRAMIDE
     Indication: PROPHYLAXIS OF NAUSEA AND VOMITING
     Dosage: 10-20 MG
     Route: 048
     Dates: start: 20130822, end: 20131206
  7. DIFFLAM [Concomitant]
     Active Substance: BENZYDAMINE HYDROCHLORIDE
     Indication: BREAST CANCER
     Dosage: UNK, AS NEEDED
     Route: 048

REACTIONS (3)
  - Dyspnoea [Unknown]
  - Pulmonary embolism [Recovered/Resolved]
  - Pleuritic pain [Unknown]

NARRATIVE: CASE EVENT DATE: 20131108
